FAERS Safety Report 20071702 (Version 1)
Quarter: 2021Q4

REPORT INFORMATION
  Report Type: Spontaneous
  Country: FR (occurrence: FR)
  Receive Date: 20211116
  Receipt Date: 20211116
  Transmission Date: 20220303
  Serious: Yes (Hospitalization, Disabling, Congenital Anomaly, Other)
  Sender: FDA-Public Use
  Company Number: FR-ABBVIE-21K-056-4159802-00

PATIENT
  Sex: Male
  Weight: 1.92 kg

DRUGS (3)
  1. VALPROATE SODIUM [Suspect]
     Active Substance: VALPROATE SODIUM
     Indication: Maternal exposure timing unspecified
     Route: 064
  2. LAMOTRIGINE [Suspect]
     Active Substance: LAMOTRIGINE
     Indication: Maternal exposure timing unspecified
     Route: 064
  3. FOLIC ACID [Concomitant]
     Active Substance: FOLIC ACID
     Indication: Maternal exposure timing unspecified
     Route: 064

REACTIONS (60)
  - Bronchiolitis [Unknown]
  - Hyperthermia [Unknown]
  - Tachypnoea [Unknown]
  - Rhonchi [Unknown]
  - Wheezing [Unknown]
  - Pharyngeal erythema [Unknown]
  - Ear infection [Unknown]
  - Gastrooesophageal reflux disease [Unknown]
  - Mite allergy [Unknown]
  - Jaundice neonatal [Unknown]
  - Nasopharyngitis [Unknown]
  - Gastrointestinal disorder [Unknown]
  - Allergy to arthropod sting [Unknown]
  - Crying [Unknown]
  - Otitis media [Unknown]
  - Disability [Unknown]
  - Flail chest [Unknown]
  - Premature baby [Unknown]
  - Tympanic membrane hyperaemia [Unknown]
  - Hypotonia neonatal [Unknown]
  - Foetal anticonvulsant syndrome [Unknown]
  - Craniosynostosis [Unknown]
  - Skull malformation [Unknown]
  - Conductive deafness [Unknown]
  - Behaviour disorder [Unknown]
  - Obstructive airways disorder [Unknown]
  - Knee deformity [Unknown]
  - Dysmorphism [Unknown]
  - Nasal disorder [Unknown]
  - Personal relationship issue [Unknown]
  - Speech disorder developmental [Unknown]
  - Affect lability [Unknown]
  - Small fontanelle [Unknown]
  - Speech disorder developmental [Unknown]
  - Hyperacusis [Unknown]
  - Strabismus [Unknown]
  - Prominent epicanthal folds [Unknown]
  - Drooling [Unknown]
  - Middle insomnia [Unknown]
  - Astigmatism [Unknown]
  - Sluggishness [Unknown]
  - Dysgraphia [Unknown]
  - Educational problem [Unknown]
  - Learning disorder [Unknown]
  - Disturbance in attention [Unknown]
  - Cognitive disorder [Unknown]
  - Initial insomnia [Unknown]
  - Hypermetropia [Unknown]
  - Autonomic nervous system imbalance [Unknown]
  - Executive dysfunction [Unknown]
  - Eating disorder [Unknown]
  - Psychomotor retardation [Unknown]
  - Knee deformity [Unknown]
  - Sleep disorder [Unknown]
  - Loss of personal independence in daily activities [Unknown]
  - Frustration tolerance decreased [Unknown]
  - Vomiting [Unknown]
  - Dysmorphism [Unknown]
  - Oropharyngeal pain [Unknown]
  - Foetal exposure during pregnancy [Unknown]

NARRATIVE: CASE EVENT DATE: 20080804
